FAERS Safety Report 9331920 (Version 1)
Quarter: 2013Q2

REPORT INFORMATION
  Report Type: Spontaneous
  Country: ES (occurrence: ES)
  Receive Date: 20130605
  Receipt Date: 20130605
  Transmission Date: 20140414
  Serious: Yes (Other)
  Sender: FDA-Public Use
  Company Number: ES-UCBSA-084648

PATIENT
  Age: 50 Year
  Sex: Female
  Weight: 53 kg

DRUGS (5)
  1. CIMZIA [Suspect]
     Dosage: NO  OF DOSES RECEIVED-2 INJECTIONS EVERY 15 DAYS (INDUCTION THERAPY 400 MG SC, EVERY 15 DAYS)
     Route: 058
     Dates: start: 20130324, end: 20130421
  2. ARAVA [Concomitant]
     Route: 048
     Dates: start: 20080905
  3. DICLOFENAC [Concomitant]
     Route: 048
     Dates: start: 2006
  4. DACORTIN [Concomitant]
     Route: 048
     Dates: start: 2006
  5. OMEPRAZOLE [Concomitant]
     Route: 048
     Dates: start: 2006

REACTIONS (2)
  - Urticaria [Recovered/Resolved]
  - Periorbital oedema [Recovered/Resolved]
